FAERS Safety Report 11796583 (Version 2)
Quarter: 2016Q3

REPORT INFORMATION
  Report Type: Spontaneous
  Country: BR (occurrence: BR)
  Receive Date: 20151203
  Receipt Date: 20160803
  Transmission Date: 20161109
  Serious: No
  Sender: FDA-Public Use
  Company Number: BR-GLENMARK PHARMACEUTICALS INC, USA.-2015GMK018657

PATIENT
  Age: 55 Year
  Sex: Female

DRUGS (7)
  1. SEROTONIN [Concomitant]
     Active Substance: SEROTONIN
     Indication: DEPRESSION
     Dosage: UNK
  2. LITHIUM. [Concomitant]
     Active Substance: LITHIUM
     Indication: DEPRESSION
     Dosage: UNK
     Route: 065
  3. BUPROPION. [Concomitant]
     Active Substance: BUPROPION
     Indication: DEPRESSION
     Dosage: UNK
  4. PRAMIPEXOLE. [Suspect]
     Active Substance: PRAMIPEXOLE
     Indication: MAJOR DEPRESSION
     Dosage: 1 MG, QD
     Route: 065
     Dates: start: 2012
  5. PRAMIPEXOLE. [Suspect]
     Active Substance: PRAMIPEXOLE
     Dosage: 2 MG, QD
     Route: 065
     Dates: start: 201305
  6. NOREPINEPHRINE [Concomitant]
     Active Substance: NOREPINEPHRINE\NOREPINEPHRINE BITARTRATE
     Indication: DEPRESSION
     Dosage: UNK
  7. LAMOTRIGINE. [Concomitant]
     Active Substance: LAMOTRIGINE
     Indication: DEPRESSION
     Dosage: UNK

REACTIONS (3)
  - Excessive masturbation [Recovered/Resolved]
  - Compulsive sexual behaviour [Recovered/Resolved]
  - Off label use [Unknown]
